FAERS Safety Report 4635305-2 (Version None)
Quarter: 2005Q2

REPORT INFORMATION
  Report Type: 
  Country: None (occurrence: None)
  Receive Date: 20050411
  Receipt Date: 20050325
  Transmission Date: 20051028
  Serious: Yes (Hospitalization)
  Sender: FDA-Public Use
  Company Number: US-2004-027586

PATIENT
  Age: 30 Year
  Sex: Male
  Weight: 104.3 kg

DRUGS (6)
  1. BETASERON [Suspect]
     Indication: RELAPSING-REMITTING MULTIPLE SCLEROSIS
     Dosage: 8 MIU, EVERY 2D, SUBCUTANEOUS
     Route: 058
     Dates: start: 19990501
  2. SOLU-MEDROL [Suspect]
     Dosage: INTRAVENOUS
     Route: 042
  3. IMURAN [Concomitant]
  4. LISINOPRIL [Concomitant]
  5. ASPIRIN [Concomitant]
  6. BACLOFEN [Concomitant]

REACTIONS (5)
  - ARTHRITIS BACTERIAL [None]
  - INFLUENZA LIKE ILLNESS [None]
  - MEDICATION ERROR [None]
  - MULTIPLE SCLEROSIS [None]
  - STAPHYLOCOCCAL SEPSIS [None]
